FAERS Safety Report 4916633-X (Version None)
Quarter: 2006Q1

REPORT INFORMATION
  Report Type: 
  Country: None (occurrence: None)
  Receive Date: 20060216
  Receipt Date: 20060216
  Transmission Date: 20060701
  Serious: Yes (Other)
  Sender: FDA-Public Use
  Company Number: None

PATIENT
  Sex: Female
  Weight: 47.6277 kg

DRUGS (1)
  1. RITUXAN [Suspect]
     Indication: LYMPHOMA
     Dosage: 518 MG EVERY 3 WEEKS IV DRIP
     Route: 041
     Dates: start: 20041208, end: 20060214

REACTIONS (2)
  - INFUSION RELATED REACTION [None]
  - RASH [None]
